FAERS Safety Report 9409527 (Version 2)
Quarter: 2013Q4

REPORT INFORMATION
  Report Type: Spontaneous
  Country: US (occurrence: None)
  Receive Date: 20130716
  Receipt Date: 20131115
  Transmission Date: 20140711
  Serious: Yes (Other)
  Sender: FDA-Public Use
  Company Number: AXC-2013-000309

PATIENT
  Age: 74 Year
  Sex: Male
  Weight: 65.8 kg

DRUGS (8)
  1. ZENPEP [Suspect]
     Indication: PANCREATIC CARCINOMA
     Dosage: 30000 USP, TID, WITH MEALS, ORAL
     Route: 048
     Dates: start: 201306
  2. COUMADIN [Suspect]
     Route: 048
     Dates: start: 2011
  3. ASPIRIN (ACETYLSALICYLIC ACID) [Concomitant]
  4. ATORVASTATIN (ATORVATATIN) [Concomitant]
  5. METOPROLOL (METOPROLOL) [Concomitant]
  6. GLIMEPRIDIE (GLIMEPIRIDIE) [Concomitant]
  7. TAMSULOSIN (TAMSULOSIN) [Concomitant]
  8. INSULIN (INSULIN) [Concomitant]

REACTIONS (3)
  - International normalised ratio increased [None]
  - Abdominal distension [None]
  - Fatigue [None]
